FAERS Safety Report 7911438-X (Version None)
Quarter: 2011Q4

REPORT INFORMATION
  Report Type: 
  Country: None (occurrence: None)
  Receive Date: 20111101
  Receipt Date: 20110823
  Transmission Date: 20120403
  Serious: Yes (Other)
  Sender: FDA-Public Use
  Company Number: 298262USA

PATIENT
  Age: 37 Year
  Sex: Female

DRUGS (1)
  1. MERCAPTOPURINE [Suspect]
     Indication: CROHN'S DISEASE

REACTIONS (3)
  - GASTRIC DISORDER [None]
  - INTESTINAL RESECTION [None]
  - HEPATIC FIBROSIS [None]
